FAERS Safety Report 24023586 (Version 1)
Quarter: 2024Q2

REPORT INFORMATION
  Report Type: Report from Study
  Country: US (occurrence: US)
  Receive Date: 20240627
  Receipt Date: 20240627
  Transmission Date: 20240716
  Serious: Yes (Other)
  Sender: FDA-Public Use
  Company Number: US-ABBVIE-5756298

PATIENT
  Sex: Male
  Weight: 93 kg

DRUGS (3)
  1. SKYRIZI [Suspect]
     Active Substance: RISANKIZUMAB-RZAA
     Indication: Product used for unknown indication
     Dosage: FORM STRENGTH: 150 MG?LAST ADMIN DATE- 2024
     Route: 058
     Dates: start: 20240511
  2. SKYRIZI [Suspect]
     Active Substance: RISANKIZUMAB-RZAA
     Dosage: FORM STRENGTH: 150 MG
     Route: 058
     Dates: start: 20240608
  3. HADLIMA [Suspect]
     Active Substance: ADALIMUMAB-BWWD
     Indication: Psoriatic arthropathy
     Dosage: FORM STRENGTH:40 MILLIGRAM
     Route: 058
     Dates: start: 20240119, end: 20240412

REACTIONS (5)
  - Retinal artery occlusion [Unknown]
  - Arthralgia [Unknown]
  - Psoriatic arthropathy [Unknown]
  - Vision blurred [Unknown]
  - Papilloedema [Unknown]

NARRATIVE: CASE EVENT DATE: 20240101
